FAERS Safety Report 24695830 (Version 3)
Quarter: 2025Q3

REPORT INFORMATION
  Report Type: Spontaneous
  Country: JP (occurrence: JP)
  Receive Date: 20241204
  Receipt Date: 20250809
  Transmission Date: 20251021
  Serious: Yes (Other)
  Sender: ALEXION PHARMACEUTICALS
  Company Number: JP-ASTRAZENECA-240135888_063010_P_1

PATIENT
  Age: 80 Year
  Sex: Female

DRUGS (10)
  1. DAPAGLIFLOZIN [Suspect]
     Active Substance: DAPAGLIFLOZIN
     Indication: Cardiac failure chronic
  2. DAPAGLIFLOZIN [Suspect]
     Active Substance: DAPAGLIFLOZIN
     Dosage: 10 MILLIGRAM, QD
  3. TOLVAPTAN [Concomitant]
     Active Substance: TOLVAPTAN
     Route: 065
  4. FUROSEMIDE [Concomitant]
     Active Substance: FUROSEMIDE
     Route: 065
  5. FUROSEMIDE [Concomitant]
     Active Substance: FUROSEMIDE
     Route: 065
  6. FUROSEMIDE [Concomitant]
     Active Substance: FUROSEMIDE
     Route: 065
  7. FUROSEMIDE [Concomitant]
     Active Substance: FUROSEMIDE
     Route: 065
  8. DIGITALIS [Concomitant]
     Active Substance: DIGITALIS
     Route: 065
  9. DIGITALIS [Concomitant]
     Active Substance: DIGITALIS
     Route: 065
  10. SACUBITRIL [Concomitant]
     Active Substance: SACUBITRIL
     Route: 065

REACTIONS (1)
  - Hyperkalaemia [Unknown]
